FAERS Safety Report 10487780 (Version 2)
Quarter: 2014Q4

REPORT INFORMATION
  Report Type: Other
  Country: US (occurrence: US)
  Receive Date: 20141001
  Receipt Date: 20141201
  Transmission Date: 20150528
  Serious: Yes (Hospitalization, Disabling, Other)
  Sender: FDA-Public Use
  Company Number: US-ACORDA-ACO_106313_2014

PATIENT
  Age: 67 Year
  Sex: Female
  Weight: 101.13 kg

DRUGS (18)
  1. TRAZODONE HYDROCHLORIDE. [Concomitant]
     Active Substance: TRAZODONE HYDROCHLORIDE
     Indication: PRODUCT USED FOR UNKNOWN INDICATION
     Dosage: 50 MG, QPM
     Route: 048
  2. METAMUCIL [Concomitant]
     Active Substance: PLANTAGO SEED
     Indication: PRODUCT USED FOR UNKNOWN INDICATION
     Route: 048
  3. FOLBIC [Concomitant]
     Active Substance: CYANOCOBALAMIN\FOLIC ACID\PYRIDOXINE
     Indication: PRODUCT USED FOR UNKNOWN INDICATION
     Dosage: 1 DF, QD
     Route: 048
  4. AMPYRA [Suspect]
     Active Substance: DALFAMPRIDINE
     Indication: MULTIPLE SCLEROSIS
     Dosage: 10 MG, BID
     Route: 048
     Dates: start: 20110617, end: 20140924
  5. BACLOFEN. [Concomitant]
     Active Substance: BACLOFEN
     Indication: MULTIPLE SCLEROSIS
     Dosage: 4 IN THE AM, 4 IN PM
     Route: 065
  6. NUVIGIL [Concomitant]
     Active Substance: ARMODAFINIL
     Indication: PRODUCT USED FOR UNKNOWN INDICATION
     Dosage: 250 MG, QAM
     Route: 048
  7. NORCO [Concomitant]
     Active Substance: ACETAMINOPHEN\HYDROCODONE BITARTRATE
     Indication: PRODUCT USED FOR UNKNOWN INDICATION
     Dosage: 10/325 MG EVER 4-6 HOURS
     Route: 048
  8. MIRALAX [Concomitant]
     Active Substance: POLYETHYLENE GLYCOL 3350
     Indication: PRODUCT USED FOR UNKNOWN INDICATION
     Dosage: 17 G, (1TSP) PM
     Route: 048
  9. LASIX [Concomitant]
     Active Substance: FUROSEMIDE
     Indication: PRODUCT USED FOR UNKNOWN INDICATION
     Dosage: 80 MG, QD
     Route: 048
  10. CLARITIN [Concomitant]
     Active Substance: LORATADINE
     Indication: PRODUCT USED FOR UNKNOWN INDICATION
     Dosage: 10 MG, QD
     Route: 048
  11. ALLOPURINOL. [Concomitant]
     Active Substance: ALLOPURINOL
     Indication: PRODUCT USED FOR UNKNOWN INDICATION
     Dosage: 200 MG, QD
     Route: 048
  12. CRANBERRY. [Concomitant]
     Active Substance: CRANBERRY
     Indication: PRODUCT USED FOR UNKNOWN INDICATION
     Dosage: 2 DF, TID
     Route: 048
  13. MOBIC [Concomitant]
     Active Substance: MELOXICAM
     Indication: PRODUCT USED FOR UNKNOWN INDICATION
     Dosage: 15 MG, QAM
     Route: 048
  14. CITALOPRAM HYDROBROMIDE. [Concomitant]
     Active Substance: CITALOPRAM HYDROBROMIDE
     Indication: PRODUCT USED FOR UNKNOWN INDICATION
     Dosage: 40 MG, QD (QPM)
     Route: 048
  15. USTELL [Concomitant]
     Active Substance: HYOSCYAMINE SULFATE\METHENAMINE\METHYLENE BLUE\PHENYL SALICYLATE\SODIUM PHOSPHATE, MONOBASIC, MONOHYDRATE
     Indication: PRODUCT USED FOR UNKNOWN INDICATION
     Dosage: UNK, Q 6 HRS
     Route: 048
  16. REBIF [Concomitant]
     Active Substance: INTERFERON BETA-1A
     Indication: MULTIPLE SCLEROSIS
     Dosage: 44 ?G, 3X/WK
     Route: 058
  17. VITAMIN D3 [Concomitant]
     Active Substance: CHOLECALCIFEROL
     Indication: PRODUCT USED FOR UNKNOWN INDICATION
     Dosage: 6000 UNK, UNK
     Route: 048
  18. VASOTEC [Concomitant]
     Active Substance: ENALAPRIL MALEATE
     Indication: PRODUCT USED FOR UNKNOWN INDICATION
     Dosage: 10 MG, IN THE PM
     Route: 048

REACTIONS (48)
  - Arthralgia [Unknown]
  - Memory impairment [Unknown]
  - Disturbance in attention [Unknown]
  - Cystitis [Unknown]
  - Neuropathy peripheral [Unknown]
  - Pseudomonas infection [Unknown]
  - Neurogenic bladder [Unknown]
  - Seizure [Recovering/Resolving]
  - Abdominal discomfort [Unknown]
  - Pain in extremity [Unknown]
  - Sleep apnoea syndrome [Unknown]
  - Gout [Unknown]
  - Ataxia [Unknown]
  - Depression [Unknown]
  - Surgery [Unknown]
  - Carpal tunnel syndrome [Unknown]
  - Optic neuritis [Unknown]
  - Homocystinuria [Unknown]
  - Adverse drug reaction [Unknown]
  - Amnesia [Unknown]
  - Intervertebral disc degeneration [Unknown]
  - Dyspnoea paroxysmal nocturnal [Unknown]
  - Muscular weakness [Unknown]
  - Spinal fusion surgery [Unknown]
  - Urinary tract infection [Unknown]
  - Limb injury [Unknown]
  - Small fibre neuropathy [Unknown]
  - Balance disorder [Unknown]
  - Arthritis [Unknown]
  - Nausea [Unknown]
  - Paraesthesia [Unknown]
  - Loss of consciousness [Recovering/Resolving]
  - Fall [Recovering/Resolving]
  - Neck pain [Unknown]
  - Psychomotor skills impaired [Unknown]
  - Vitamin D deficiency [Unknown]
  - Insomnia [Unknown]
  - Wheelchair user [Unknown]
  - Cold sweat [Unknown]
  - Obesity [Unknown]
  - Somnolence [Unknown]
  - Cognitive disorder [Unknown]
  - Torticollis [Unknown]
  - Lumbar spinal stenosis [Unknown]
  - Burning sensation [Unknown]
  - Fatigue [Unknown]
  - Back pain [Unknown]
  - Gait disturbance [Unknown]

NARRATIVE: CASE EVENT DATE: 201409
